FAERS Safety Report 9415050 (Version 1)
Quarter: 2013Q3

REPORT INFORMATION
  Report Type: Report from Study
  Country: US (occurrence: US)
  Receive Date: 20130723
  Receipt Date: 20130723
  Transmission Date: 20140515
  Serious: Yes (Other)
  Sender: FDA-Public Use
  Company Number: PHEH2013US015429

PATIENT
  Age: 63 Year
  Sex: Female
  Weight: 54.42 kg

DRUGS (9)
  1. GILENYA [Suspect]
     Dosage: 0.5 MG, QD
     Route: 048
  2. LEVOXYL [Concomitant]
     Dosage: 100 UG, UNK
  3. FOLIC ACID [Concomitant]
  4. OXYBUTYNIN [Concomitant]
     Dosage: 15 MG, UNK
  5. VITAMIN B6 [Concomitant]
     Dosage: 50 MG, UNK
  6. VITAMIN B 12 [Concomitant]
  7. VITAMIN D [Concomitant]
     Dosage: 1000 U, UNK
  8. CALCIUM [Concomitant]
     Dosage: 1200 U, UNK
  9. MIRALAX [Concomitant]

REACTIONS (3)
  - Concussion [Unknown]
  - Fall [Unknown]
  - Balance disorder [Unknown]
